FAERS Safety Report 6673101-5 (Version None)
Quarter: 2010Q2

REPORT INFORMATION
  Report Type: 
  Country: None (occurrence: None)
  Receive Date: 20100406
  Receipt Date: 20100322
  Transmission Date: 20101027
  Serious: Yes (Hospitalization, Other)
  Sender: FDA-Public Use
  Company Number: SPV1-2010-00535

PATIENT
  Sex: Female
  Weight: 56.7 kg

DRUGS (5)
  1. ADDERALL XR 25 [Suspect]
     Indication: NARCOLEPSY
     Dosage: 1X/DAY;QD
     Dates: start: 20010101, end: 20070101
  2. FOSAMAX [Concomitant]
  3. MOBIC [Concomitant]
  4. LUNESTA [Concomitant]
  5. METOPROLOL (METOPROLOL) [Concomitant]

REACTIONS (5)
  - ARTERIOSCLEROSIS [None]
  - CHEST PAIN [None]
  - HEART RATE INCREASED [None]
  - LEFT VENTRICULAR HYPERTROPHY [None]
  - OFF LABEL USE [None]
